FAERS Safety Report 5953261-1 (Version None)
Quarter: 2008Q4

REPORT INFORMATION
  Report Type: 
  Country: None (occurrence: None)
  Receive Date: 20081114
  Receipt Date: 20081106
  Transmission Date: 20090506
  Serious: Yes (Hospitalization)
  Sender: FDA-Public Use
  Company Number: US-ROCHE-595743

PATIENT
  Age: 83 Year
  Sex: Female

DRUGS (8)
  1. BONIVA [Suspect]
     Indication: DRUG USE FOR UNKNOWN INDICATION
     Route: 065
     Dates: start: 20060101
  2. NORVASC [Concomitant]
  3. TENORMIN [Concomitant]
  4. ZANTAC [Concomitant]
  5. ULTRAM [Concomitant]
  6. CALCIUM [Concomitant]
  7. ASCORBIC ACID [Concomitant]
  8. VITAMIN B-12 [Concomitant]

REACTIONS (1)
  - THYROID CANCER [None]
